FAERS Safety Report 8136478-X (Version None)
Quarter: 2012Q1

REPORT INFORMATION
  Report Type: 
  Country: None (occurrence: None)
  Receive Date: 20120214
  Receipt Date: 20120202
  Transmission Date: 20120608
  Serious: Yes (Hospitalization, Other)
  Sender: FDA-Public Use
  Company Number: US-ELI_LILLY_AND_COMPANY-US201106000880

PATIENT
  Sex: Female

DRUGS (12)
  1. XANAX [Concomitant]
     Indication: NERVOUS SYSTEM DISORDER
  2. ACTOS [Concomitant]
     Indication: DIABETES MELLITUS
  3. LYRICA [Concomitant]
  4. CELEBREX [Concomitant]
  5. FORTEO [Suspect]
     Dosage: UNK UNK, QD
  6. ADVAIR DISKUS 100/50 [Concomitant]
     Indication: ASTHMA
  7. CYMBALTA [Concomitant]
     Indication: DEPRESSION
     Dosage: 60 MG, QD
  8. FORTEO [Suspect]
     Indication: OSTEOPOROSIS
     Dosage: 20 UG, QD
     Route: 065
  9. OXYCODONE HCL [Concomitant]
  10. SEROQUEL [Concomitant]
     Indication: NERVOUS SYSTEM DISORDER
  11. FORTEO [Suspect]
     Dosage: 20 UG, QD
     Route: 065
  12. FORTEO [Suspect]
     Dosage: 20 UG, QD

REACTIONS (13)
  - PULMONARY OEDEMA [None]
  - PAIN [None]
  - INFLAMMATION [None]
  - EMPHYSEMA [None]
  - THROMBOSIS [None]
  - WEIGHT DECREASED [None]
  - WEIGHT INCREASED [None]
  - MUSCLE SPASMS [None]
  - PAIN IN EXTREMITY [None]
  - GAIT DISTURBANCE [None]
  - GROIN PAIN [None]
  - LOSS OF CONSCIOUSNESS [None]
  - OEDEMA PERIPHERAL [None]
